FAERS Safety Report 9118335 (Version 2)
Quarter: 2013Q1

REPORT INFORMATION
  Report Type: Spontaneous
  Country: CH (occurrence: None)
  Receive Date: 20130128
  Receipt Date: 20130228
  Transmission Date: 20140127
  Serious: Yes (Death, Other)
  Sender: FDA-Public Use
  Company Number: 20130024

PATIENT
  Sex: 0

DRUGS (3)
  1. SPASFON [Suspect]
     Indication: ANAEMIA
     Route: 064
     Dates: start: 20121123
  2. VENOFER (IRON SUCROSE INJECTION-VIFOR) (IRON SUCROSE INJECTION) 20 MG/ML [Suspect]
     Indication: ANAEMIA
     Dosage: 300 MG GIVEN TO MOTHER TRANSPLACENTAL
     Route: 064
     Dates: start: 20121122, end: 20121124
  3. NIFEDIPINE [Suspect]
     Indication: HIGH RISK PREGNANCY
     Route: 064
     Dates: start: 20121121, end: 20121121

REACTIONS (3)
  - Bradycardia foetal [None]
  - Maternal drugs affecting foetus [None]
  - Foetal death [None]
